FAERS Safety Report 19444546 (Version 2)
Quarter: 2021Q3

REPORT INFORMATION
  Report Type: Report from Study
  Country: FR (occurrence: FR)
  Receive Date: 20210621
  Receipt Date: 20210701
  Transmission Date: 20211014
  Serious: Yes (Death, Hospitalization)
  Sender: FDA-Public Use
  Company Number: NVSC2021FR041193

PATIENT
  Age: 49 Year
  Sex: Female

DRUGS (8)
  1. CETIRIZINA [Concomitant]
     Active Substance: CETIRIZINE HYDROCHLORIDE
     Indication: PRURITUS
     Dosage: 10 MG
     Route: 048
     Dates: start: 20201230
  2. PREGABALIN. [Concomitant]
     Active Substance: PREGABALIN
     Indication: ARTHRALGIA
     Dosage: 200 MG
     Route: 048
     Dates: start: 20200903, end: 20201004
  3. LAROXYL [Concomitant]
     Active Substance: AMITRIPTYLINE HYDROCHLORIDE
     Indication: NEURALGIA
     Dosage: 5 DRP
     Route: 065
     Dates: start: 20210109
  4. LEE011 [Suspect]
     Active Substance: RIBOCICLIB
     Indication: HER2 NEGATIVE BREAST CANCER
     Dosage: 400 MG
     Route: 048
     Dates: start: 20201005, end: 20210217
  5. CAPECITABINE. [Concomitant]
     Active Substance: CAPECITABINE
     Indication: METASTASIS
     Dosage: UNK
     Route: 048
     Dates: start: 20210318
  6. PARACETAMOL [Concomitant]
     Active Substance: ACETAMINOPHEN
     Indication: ARTHRALGIA
     Dosage: 1 G
     Route: 048
     Dates: start: 20200902
  7. LETROZOLE. [Suspect]
     Active Substance: LETROZOLE
     Indication: HER2 NEGATIVE BREAST CANCER
     Dosage: 25 MG
     Route: 048
     Dates: start: 20201005, end: 20210217
  8. GABAPENTIN. [Concomitant]
     Active Substance: GABAPENTIN
     Indication: ARTHRALGIA
     Dosage: 300 MG
     Route: 048
     Dates: start: 20201230, end: 20210108

REACTIONS (3)
  - Headache [Fatal]
  - Optic nerve disorder [Fatal]
  - Delirium [Fatal]

NARRATIVE: CASE EVENT DATE: 20210204
